FAERS Safety Report 9006716 (Version 1)
Quarter: 2013Q1

REPORT INFORMATION
  Report Type: Spontaneous
  Country: US (occurrence: US)
  Receive Date: 20130110
  Receipt Date: 20130110
  Transmission Date: 20140127
  Serious: Yes (Other)
  Sender: FDA-Public Use
  Company Number: US-JNJFOC-20130103026

PATIENT
  Age: 22 Month
  Sex: Female
  Weight: 10.89 kg

DRUGS (1)
  1. CHILDREN^S TYLENOL [Suspect]
     Indication: PYREXIA
     Dosage: 3.75ML EVERY 4-6 HOURS
     Route: 048
     Dates: start: 20130101

REACTIONS (3)
  - Product contamination physical [Unknown]
  - Wrong technique in drug usage process [Unknown]
  - Product quality issue [None]
